FAERS Safety Report 20650836 (Version 3)
Quarter: 2022Q2

REPORT INFORMATION
  Report Type: Report from Study
  Country: HU (occurrence: HU)
  Receive Date: 20220329
  Receipt Date: 20220524
  Transmission Date: 20220721
  Serious: Yes (Hospitalization, Other)
  Sender: FDA-Public Use
  Company Number: HU-002147023-NVSC2022HU037466

PATIENT
  Sex: Male
  Weight: 86 kg

DRUGS (7)
  1. AMLODIPINE [Suspect]
     Active Substance: AMLODIPINE BESYLATE
     Indication: Hypertension
     Dosage: 20 MILLIGRAM, QD (10 MG, BID), (UNKNOWN DATE IN 2015)
     Route: 048
  2. MYFORTIC [Suspect]
     Active Substance: MYCOPHENOLATE SODIUM
     Indication: Renal transplant
     Dosage: 360 MILLIGRAM, QD (180 MG, BID), (START DATE:21-APR-2021)
     Route: 048
     Dates: end: 20220118
  3. MYFORTIC [Suspect]
     Active Substance: MYCOPHENOLATE SODIUM
     Dosage: 360 MILLIGRAM, QD, (180 MG, BID)
     Route: 048
     Dates: end: 20211213
  4. MYFORTIC [Suspect]
     Active Substance: MYCOPHENOLATE SODIUM
     Dosage: 360 MILLIGRAM, QD, (180 MG, BID)
     Route: 048
     Dates: end: 20220118
  5. CONTROLOC [Concomitant]
     Active Substance: PANTOPRAZOLE SODIUM
     Indication: Antacid therapy
     Dosage: 80 MILLIGRAM, QD (40 MG, BID), (START DATE:21-APR-2021)
     Route: 048
  6. ENVARSUS XR [Concomitant]
     Active Substance: TACROLIMUS
     Indication: Renal transplant
     Dosage: 3 MILLIGRAM, QD, (START DATE:21-APR-2021)
     Route: 048
  7. PREDNISOLONE [Concomitant]
     Active Substance: PREDNISOLONE
     Indication: Renal transplant
     Dosage: 15 MILLIGRAM, QD, (START DATE:21-APR-2021)
     Route: 048

REACTIONS (12)
  - Glomerulonephritis membranoproliferative [Not Recovered/Not Resolved]
  - Cytomegalovirus infection [Recovered/Resolved]
  - Leukopenia [Recovered/Resolved]
  - Tubulointerstitial nephritis [Not Recovered/Not Resolved]
  - Cryoglobulinaemia [Unknown]
  - Nephrotic syndrome [Unknown]
  - Renal tubular atrophy [Not Recovered/Not Resolved]
  - Biliary dilatation [Unknown]
  - Renal impairment [Recovering/Resolving]
  - Bile duct stone [Unknown]
  - Cholelithiasis [Unknown]
  - Blood glucose increased [Recovered/Resolved]

NARRATIVE: CASE EVENT DATE: 20150120
